FAERS Safety Report 4346058-X (Version None)
Quarter: 2004Q2

REPORT INFORMATION
  Report Type: 
  Country: None (occurrence: None)
  Receive Date: 20040420
  Receipt Date: 20040407
  Transmission Date: 20050107
  Serious: Yes (Hospitalization)
  Sender: FDA-Public Use
  Company Number: A02200401230

PATIENT
  Age: 50 Year
  Sex: Female

DRUGS (6)
  1. VALPROATE SODIUM [Suspect]
     Dosage: ORAL; FEW YEARS
     Route: 048
  2. STILNOX (ZOLPIEM) - TABLET - 10 MG [Suspect]
     Dosage: ORAL; FEW YEARS
     Route: 048
  3. EUTHYRAL (LIOTHYRONINE/LEVOTHYROXINE) - TABLET 1 DF [Suspect]
     Dosage: ORAL; FEW YEARS
     Route: 048
  4. QUITAXON ( DEXEPIN HYDROCHLORIDE) [Suspect]
     Dosage: ORAL; FEW YEARS
     Route: 048
  5. NEURONTIN [Concomitant]
  6. OESTRODOSE (ESTRADIOL) [Concomitant]

REACTIONS (5)
  - BLOOD THYROID STIMULATING HORMONE DECREASED [None]
  - FACE OEDEMA [None]
  - OEDEMA PERIPHERAL [None]
  - RASH [None]
  - WEIGHT INCREASED [None]
